FAERS Safety Report 23241777 (Version 2)
Quarter: 2023Q4

REPORT INFORMATION
  Report Type: Spontaneous
  Country: GB (occurrence: GB)
  Receive Date: 20231129
  Receipt Date: 20231218
  Transmission Date: 20240109
  Serious: Yes (Other)
  Sender: FDA-Public Use
  Company Number: GB-MYLANLABS-2023M1062156

PATIENT
  Age: 27 Year
  Sex: Male

DRUGS (5)
  1. CLOZARIL [Suspect]
     Active Substance: CLOZAPINE
     Indication: Schizophrenia
     Dosage: UNK
     Route: 048
     Dates: start: 20220120
  2. PIZOTYLINE [Concomitant]
     Active Substance: PIZOTYLINE
     Indication: Migraine
     Dosage: 500 MICROGRAM, PM
     Route: 065
  3. BISOPROLOL [Concomitant]
     Active Substance: BISOPROLOL\BISOPROLOL FUMARATE
     Indication: Left ventricular hypertrophy
     Dosage: 2.5 MILLIGRAM, DAILY
     Route: 065
  4. RAMIPRIL [Concomitant]
     Active Substance: RAMIPRIL
     Indication: Left ventricular hypertrophy
     Dosage: 2.5 MILLIGRAM, DAILY
     Route: 065
  5. SCOPOLAMINE [Concomitant]
     Active Substance: SCOPOLAMINE
     Indication: Salivary hypersecretion
     Dosage: 300 MICROGRAM, PM
     Route: 065

REACTIONS (3)
  - Thrombocytopenia [Unknown]
  - Benign ethnic neutropenia [Unknown]
  - Tooth infection [Unknown]

NARRATIVE: CASE EVENT DATE: 20230608
